FAERS Safety Report 6635925-X (Version None)
Quarter: 2010Q1

REPORT INFORMATION
  Report Type: 
  Country: None (occurrence: None)
  Receive Date: 20100316
  Receipt Date: 20100305
  Transmission Date: 20100710
  Serious: Yes (Other)
  Sender: FDA-Public Use
  Company Number: GB-NOVOPROD-301430

PATIENT
  Sex: Female
  Weight: 70.748 kg

DRUGS (8)
  1. NOVORAPID FLEXPEN [Suspect]
     Indication: TYPE 2 DIABETES MELLITUS
     Dosage: 44 IU, QD (24+20)
     Route: 058
     Dates: start: 20091120, end: 20091130
  2. NOVOMIX 30 FLEXPEN [Suspect]
     Indication: TYPE 2 DIABETES MELLITUS
     Dosage: 44 IU, QD (24+20)
     Dates: start: 20050101
  3. METFORMIN HCL [Concomitant]
     Indication: TYPE 2 DIABETES MELLITUS
     Dosage: 500 MG, TID
     Route: 048
  4. METFORMIN HCL [Concomitant]
     Dosage: 1850 MG, QD (500+500+850)
  5. NEUROFEN [Concomitant]
     Indication: SPONDYLITIS
     Dosage: UNK
     Route: 048
  6. RAMIPRIL [Concomitant]
     Route: 048
  7. CLOPIDOGREL [Concomitant]
     Route: 048
  8. SIMVASTATIN [Concomitant]
     Route: 048

REACTIONS (7)
  - BLOOD GLUCOSE INCREASED [None]
  - DRUG DISPENSING ERROR [None]
  - FEELING COLD [None]
  - HEADACHE [None]
  - PRURITUS GENERALISED [None]
  - RASH PRURITIC [None]
  - WRONG DRUG ADMINISTERED [None]
